FAERS Safety Report 7580186-0 (Version None)
Quarter: 2011Q2

REPORT INFORMATION
  Report Type: 
  Country: None (occurrence: None)
  Receive Date: 20110629
  Receipt Date: 20110610
  Transmission Date: 20111010
  Serious: Yes (Other)
  Sender: FDA-Public Use
  Company Number: US-BAYER-2011-022926

PATIENT
  Age: 21 Year
  Sex: Female
  Weight: 45.351 kg

DRUGS (4)
  1. DROSPIRENONE AND ETHINYL ESTRADIOL [Suspect]
     Indication: PREMENSTRUAL SYNDROME
     Dosage: UNK, QD
     Dates: start: 20060101, end: 20090901
  2. VITAMIN TAB [Concomitant]
  3. PRILOSEC [Concomitant]
  4. NUVARING [Concomitant]

REACTIONS (10)
  - DEPRESSION [None]
  - DIARRHOEA [None]
  - NAUSEA [None]
  - PAIN [None]
  - EMOTIONAL DISTRESS [None]
  - FEAR OF DEATH [None]
  - CHOLECYSTITIS [None]
  - ABDOMINAL PAIN [None]
  - NERVOUSNESS [None]
  - VOMITING [None]
